FAERS Safety Report 9987031 (Version 2)
Quarter: 2014Q2

REPORT INFORMATION
  Report Type: Report from Study
  Country: US (occurrence: US)
  Receive Date: 20140307
  Receipt Date: 20140408
  Transmission Date: 20141212
  Serious: Yes (Death)
  Sender: FDA-Public Use
  Company Number: US-B.I. PHARMACEUTICALS,INC./RIDGEFIELD-2014-BI-10049BI

PATIENT
  Age: 85 Year
  Sex: Female
  Weight: 90 kg

DRUGS (13)
  1. DABIGATRAN [Suspect]
     Indication: ATRIAL FIBRILLATION
     Dosage: STRENGTH AND DAILY DOSE: 150 MG Q/2 H
     Route: 048
     Dates: end: 20120930
  2. METOPROLOL TARTRATE [Concomitant]
     Dosage: 50 MG
     Route: 048
  3. LISINOPRIL [Concomitant]
     Dosage: 10 MG
     Route: 048
  4. CARBIDOPA/ LEVODOPA [Concomitant]
     Dosage: DAILY DOSE: 25/100 MG TID
     Route: 048
  5. SIMVASTATIN [Concomitant]
     Dosage: 10 MG
     Route: 048
  6. OMEPRAZOLE [Concomitant]
     Dosage: 20 MG
     Route: 048
  7. LOXAPRO [Concomitant]
     Dosage: 10 MG
     Route: 048
  8. ALPRAZOLAM [Concomitant]
     Dosage: 0.5 MG
     Route: 048
  9. OCUVITE [Concomitant]
     Route: 048
  10. FOLIC ACID [Concomitant]
     Dosage: 1 MG
     Route: 048
  11. STOOL SOFTENER (KIRKLAND BRAND ) [Concomitant]
     Route: 048
  12. DULCOLAX [Concomitant]
     Dosage: UNKNOWN DOSE
     Route: 048
  13. KETOCONAZOLE CREAM [Concomitant]
     Dosage: 2%
     Route: 065

REACTIONS (2)
  - Upper gastrointestinal haemorrhage [Fatal]
  - Intestinal ischaemia [Fatal]
